FAERS Safety Report 23990545 (Version 3)
Quarter: 2024Q3

REPORT INFORMATION
  Report Type: Spontaneous
  Country: US (occurrence: US)
  Receive Date: 20240619
  Receipt Date: 20240722
  Transmission Date: 20241016
  Serious: Yes (Hospitalization, Other)
  Sender: BRISTOL MYERS SQUIBB
  Company Number: US-BRISTOL-MYERS SQUIBB COMPANY-2024-097932

PATIENT
  Age: 80 Year
  Sex: Female
  Weight: 58.51 kg

DRUGS (1)
  1. REVLIMID [Suspect]
     Active Substance: LENALIDOMIDE
     Indication: Plasma cell myeloma
     Dosage: FREQUENCY: 21?1 CAPSULE DAILY ?FOR 21 DAYS, THEN ?7 DAYS OFF
     Route: 048

REACTIONS (4)
  - Hip fracture [Unknown]
  - Balance disorder [Unknown]
  - Fall [Unknown]
  - Urinary tract infection [Not Recovered/Not Resolved]

NARRATIVE: CASE EVENT DATE: 20240602
